FAERS Safety Report 5701065-7 (Version None)
Quarter: 2008Q2

REPORT INFORMATION
  Report Type: 
  Country: None (occurrence: None)
  Receive Date: 20080410
  Receipt Date: 20080403
  Transmission Date: 20081010
  Serious: No
  Sender: FDA-Public Use
  Company Number: US-BAXTER-2008BH003063

PATIENT
  Sex: Male

DRUGS (4)
  1. HEPARIN SODIUM [Suspect]
     Indication: DRUG USE FOR UNKNOWN INDICATION
     Route: 065
     Dates: start: 20080131, end: 20080131
  2. HEPARIN SODIUM [Suspect]
     Route: 041
     Dates: start: 20080201, end: 20080201
  3. HEPARIN SODIUM [Suspect]
     Route: 041
     Dates: start: 20080203, end: 20080203
  4. HEPARIN SODIUM [Suspect]
     Route: 041
     Dates: start: 20080204, end: 20080204

REACTIONS (1)
  - TACHYCARDIA [None]
